FAERS Safety Report 8574287-8 (Version None)
Quarter: 2012Q3

REPORT INFORMATION
  Report Type: 
  Country: None (occurrence: None)
  Receive Date: 20120806
  Receipt Date: 20120606
  Transmission Date: 20120928
  Serious: Yes (Life-Threatening, Hospitalization)
  Sender: FDA-Public Use
  Company Number: JP-GILEAD-2012-0055405

PATIENT
  Age: 60 Year
  Sex: Female
  Weight: 45 kg

DRUGS (36)
  1. NEORAL [Concomitant]
     Route: 048
  2. GASMOTIN [Concomitant]
     Indication: GASTROINTESTINAL TRACT IRRITATION
     Route: 048
  3. AMOBAN [Concomitant]
     Route: 048
  4. ZOLPIDEM [Concomitant]
     Route: 048
  5. ZOLPIDEM [Concomitant]
     Route: 048
  6. ALDACTONE [Concomitant]
     Route: 048
  7. PAXIL [Concomitant]
     Route: 048
  8. ALFAROL [Concomitant]
     Route: 048
  9. SULFAMETHOXAZOLE AND TRIMETHOPRIM [Concomitant]
     Route: 048
  10. FUNGIZONE [Concomitant]
     Route: 048
  11. RABEPRAZOLE SODIUM [Concomitant]
     Route: 048
  12. SULFAMETHOXAZOLE AND TRIMETHOPRIM [Concomitant]
     Indication: PROPHYLAXIS
     Route: 048
  13. FUROSEMIDE [Concomitant]
     Route: 048
  14. AMBRISENTAN [Suspect]
     Indication: PULMONARY ARTERIAL HYPERTENSION
     Dosage: 2.5 MG, QD
     Route: 048
     Dates: start: 20110517, end: 20110523
  15. PAXIL [Concomitant]
     Route: 048
  16. ALFAROL [Concomitant]
     Indication: PROPHYLAXIS
     Route: 048
  17. FUROSEMIDE [Concomitant]
     Route: 048
  18. MAGLAX [Concomitant]
     Indication: PROPHYLAXIS
     Route: 048
  19. VOLIBRIS [Suspect]
     Indication: PULMONARY ARTERIAL HYPERTENSION
     Dosage: 2.5MG PER DAY
     Route: 048
     Dates: start: 20110517, end: 20110523
  20. CYCLOSPORINE [Concomitant]
     Dosage: 100MG PER DAY
     Route: 065
  21. FUNGIZONE [Concomitant]
     Indication: INFECTION PROPHYLAXIS
     Route: 048
  22. ALDACTONE [Concomitant]
     Route: 048
  23. AMINO ACID INJ [Concomitant]
     Route: 048
  24. WARFARIN SODIUM [Concomitant]
     Indication: PULMONARY ARTERIAL HYPERTENSION
     Route: 048
  25. WARFARIN SODIUM [Concomitant]
     Route: 048
  26. NEORAL [Concomitant]
     Route: 048
  27. MUCOSTA [Concomitant]
     Indication: PROPHYLAXIS
     Route: 048
  28. MUCOSTA [Concomitant]
     Route: 048
  29. AMINO ACID INJ [Concomitant]
     Indication: PROPHYLAXIS
     Route: 048
  30. CALCIUM CARBONATE [Concomitant]
     Indication: PROPHYLAXIS
     Route: 048
  31. CALCIUM CARBONATE [Concomitant]
     Route: 048
  32. AMOBAN [Concomitant]
     Route: 048
  33. CYCLOSPORINE [Concomitant]
     Indication: INTERSTITIAL LUNG DISEASE
     Dosage: 100MG PER DAY
     Route: 065
  34. GASMOTIN [Concomitant]
     Route: 048
  35. RABEPRAZOLE SODIUM [Concomitant]
     Indication: PROPHYLAXIS
     Route: 048
  36. MAGLAX [Concomitant]
     Route: 048

REACTIONS (2)
  - INTERSTITIAL LUNG DISEASE [None]
  - RESPIRATORY FAILURE [None]
